FAERS Safety Report 6528184-X (Version None)
Quarter: 2010Q1

REPORT INFORMATION
  Report Type: 
  Country: None (occurrence: None)
  Receive Date: 20100106
  Receipt Date: 20091228
  Transmission Date: 20100710
  Serious: Yes (Hospitalization)
  Sender: FDA-Public Use
  Company Number: CN-NOVOPROD-302537

PATIENT
  Age: 33 Year
  Sex: Female

DRUGS (5)
  1. NOVOLIN R [Suspect]
     Indication: TYPE 2 DIABETES MELLITUS
     Dosage: 10+10 IU, QD
     Route: 058
  2. NOVOLIN R [Suspect]
     Dosage: 12+12 IU, QD
  3. NOVOLIN N [Suspect]
     Indication: TYPE 2 DIABETES MELLITUS
  4. NOVOLIN R [Suspect]
     Indication: TYPE 2 DIABETES MELLITUS
  5. NOVOLIN R [Suspect]
     Dosage: UNK
     Route: 058

REACTIONS (2)
  - BLOOD GLUCOSE INCREASED [None]
  - PAIN IN EXTREMITY [None]
